FAERS Safety Report 18634328 (Version 1)
Quarter: 2020Q4

REPORT INFORMATION
  Report Type: Report from Study
  Country: US (occurrence: US)
  Receive Date: 20201218
  Receipt Date: 20201218
  Transmission Date: 20210114
  Serious: Yes (Hospitalization)
  Sender: FDA-Public Use
  Company Number: US-PFIZER INC-2020492361

PATIENT
  Age: 62 Year
  Sex: Female
  Weight: 110 kg

DRUGS (2)
  1. ASTX727 [Suspect]
     Active Substance: CEDAZURIDINE\DECITABINE
     Indication: BREAST CANCER
     Dosage: [CEDAZURIDINE 100 MG, DECITABINE 35 MG], DAYS 1, 3, 5 OF 14 DAY CYCLE
     Dates: start: 20201109, end: 20201127
  2. TALAZOPARIB. [Suspect]
     Active Substance: TALAZOPARIB
     Indication: BREAST CANCER
     Dosage: 0.5 MG, DAYS 1-7 OF 14 DAY CYCLE
     Dates: start: 20201109, end: 20201129

REACTIONS (1)
  - Sepsis [Not Recovered/Not Resolved]

NARRATIVE: CASE EVENT DATE: 20201210
